FAERS Safety Report 13467312 (Version 1)
Quarter: 2017Q2

REPORT INFORMATION
  Report Type: Spontaneous
  Country: US (occurrence: US)
  Receive Date: 20170420
  Receipt Date: 20170420
  Transmission Date: 20170830
  Serious: Yes (Hospitalization)
  Sender: FDA-Public Use
  Company Number: None

PATIENT
  Age: 57 Year
  Sex: Male
  Weight: 142.3 kg

DRUGS (1)
  1. VANCOMYCIN [Suspect]
     Active Substance: VANCOMYCIN
     Indication: SEPSIS
     Dates: start: 20161113, end: 20161116

REACTIONS (6)
  - Blood fibrinogen increased [None]
  - Sepsis [None]
  - Pneumonia [None]
  - Drug hypersensitivity [None]
  - Thrombocytopenia [None]
  - Bronchitis [None]

NARRATIVE: CASE EVENT DATE: 20161113
